FAERS Safety Report 8978086 (Version 1)
Quarter: 2012Q4

REPORT INFORMATION
  Report Type: 
  Country: US (occurrence: None)
  Receive Date: 20121218
  Receipt Date: 20121218
  Transmission Date: 20130627
  Serious: No
  Sender: FDA-Public Use
  Company Number: None

PATIENT
  Sex: Female

DRUGS (2)
  1. VITAMIN D [Suspect]
     Dosage: 1.25 MG (50,000 UNIT
  2. VITAMIN D2 [Suspect]

REACTIONS (3)
  - Medication error [None]
  - Overdose [None]
  - Drug dispensing error [None]
